FAERS Safety Report 21550186 (Version 1)
Quarter: 2022Q4

REPORT INFORMATION
  Report Type: Report from Study
  Country: JP (occurrence: JP)
  Receive Date: 20221103
  Receipt Date: 20221103
  Transmission Date: 20230113
  Serious: Yes (Other)
  Sender: FDA-Public Use
  Company Number: JP-ORPHANEU-2019007570

PATIENT

DRUGS (11)
  1. CARBAGLU [Suspect]
     Active Substance: CARGLUMIC ACID
     Indication: Hyperammonaemia
     Dosage: UNK
     Route: 048
     Dates: start: 20180310
  2. CARBAGLU [Suspect]
     Active Substance: CARGLUMIC ACID
     Dosage: 150 MILLIGRAM/KILOGRAM
     Route: 048
     Dates: start: 201901, end: 20190920
  3. CARBAGLU [Suspect]
     Active Substance: CARGLUMIC ACID
     Dosage: 800 MILLIGRAM (PER DAY)
     Route: 048
     Dates: start: 202111
  4. BAKTERIOFID S [Concomitant]
     Indication: Prophylaxis
     Dosage: 0.4 GRAM, 3 TIMES A WEEK
     Route: 048
     Dates: start: 20181119
  5. PREDNISOLONE [Concomitant]
     Active Substance: PREDNISOLONE
     Indication: Product used for unknown indication
     Dosage: 2 MILLIGRAM
     Route: 048
     Dates: start: 20181119
  6. L-CARNITIN [LEVOCARNITINE] [Concomitant]
     Indication: Product used for unknown indication
     Dosage: 12 MILLILITER
     Route: 048
     Dates: start: 20181119
  7. URSO [Concomitant]
     Active Substance: URSODIOL
     Indication: Product used for unknown indication
     Dosage: 75 MILLIGRAM
     Route: 048
     Dates: start: 20181119
  8. LANSOPRAZOLE [Concomitant]
     Active Substance: LANSOPRAZOLE
     Indication: Product used for unknown indication
     Dosage: 7.5 MILLIGRAM
     Route: 048
     Dates: start: 20181119
  9. GLYCYRON [GLYCYRRHIZIC ACID, AMMONIUM SALT] [Concomitant]
     Indication: Product used for unknown indication
     Dosage: 1 DOSAGE FORM
     Route: 048
     Dates: start: 20181119
  10. PROGRAF [Concomitant]
     Active Substance: TACROLIMUS
     Indication: Product used for unknown indication
     Dosage: 2.8 MILLIGRAM
     Route: 048
     Dates: start: 20181119
  11. BIOTIN [Concomitant]
     Active Substance: BIOTIN
     Indication: Product used for unknown indication
     Dosage: 2 MILLIGRAM
     Route: 048
     Dates: start: 20181119

REACTIONS (6)
  - Seizure [Unknown]
  - Rash [Recovering/Resolving]
  - Varicella [Recovering/Resolving]
  - Ammonia increased [Recovering/Resolving]
  - Vomiting [Recovered/Resolved]
  - Vomiting [Recovering/Resolving]

NARRATIVE: CASE EVENT DATE: 20190101
